FAERS Safety Report 8588272-3 (Version None)
Quarter: 2012Q3

REPORT INFORMATION
  Report Type: 
  Country: None (occurrence: None)
  Receive Date: 20120813
  Receipt Date: 20120807
  Transmission Date: 20120928
  Serious: Yes (Hospitalization, Other)
  Sender: FDA-Public Use
  Company Number: CA-UCBSA-056422

PATIENT
  Age: 15 Year
  Sex: Female

DRUGS (4)
  1. CIMZIA [Suspect]
     Indication: CROHN'S DISEASE
     Dosage: RECEIVED TWO INJECTIONS ONLY, FIRST ON 03/APR/2012 AND SECOND ON 18/APR/2012
     Route: 058
     Dates: start: 20120403, end: 20120418
  2. IRON [Concomitant]
     Indication: ANAEMIA
     Route: 048
  3. TYLENOL EXTRA-FORT [Concomitant]
     Indication: PAIN
     Route: 048
  4. ELAVIL [Concomitant]
     Route: 048

REACTIONS (1)
  - RHEUMATOID ARTHRITIS [None]
